FAERS Safety Report 7340584-7 (Version None)
Quarter: 2011Q1

REPORT INFORMATION
  Report Type: 
  Country: None (occurrence: None)
  Receive Date: 20110309
  Receipt Date: 20110228
  Transmission Date: 20110831
  Serious: Yes (Other)
  Sender: FDA-Public Use
  Company Number: PHHY2011DE04263

PATIENT
  Age: 30 Year
  Sex: Female

DRUGS (7)
  1. FOLIC ACID [Concomitant]
     Indication: PREGNANCY
     Dosage: 5 MG, QD
     Route: 048
  2. PREDNISOLONE [Concomitant]
     Indication: SYSTEMIC LUPUS ERYTHEMATOSUS
     Dosage: 1 MG, QD
     Route: 048
  3. KEPPRA [Concomitant]
     Indication: EPILEPSY
     Dosage: 750 MG, BID
     Dates: start: 20070101
  4. TIMOX [Suspect]
     Indication: EPILEPSY
     Dosage: 400 MG
     Route: 048
  5. QUENSYL [Concomitant]
     Indication: SYSTEMIC LUPUS ERYTHEMATOSUS
     Dosage: 200 MG, BID
     Route: 048
  6. TIMOX [Suspect]
     Indication: CONVULSION
     Dosage: 600 MG, TID
     Dates: start: 20060101
  7. KEPPRA [Concomitant]
     Dosage: 500 MG, TID

REACTIONS (3)
  - GRAND MAL CONVULSION [None]
  - DRUG LEVEL FLUCTUATING [None]
  - DRUG EXPOSURE DURING PREGNANCY [None]
